FAERS Safety Report 5450584-X (Version None)
Quarter: 2007Q3

REPORT INFORMATION
  Report Type: 
  Country: None (occurrence: None)
  Receive Date: 20070912
  Receipt Date: 20070830
  Transmission Date: 20080115
  Serious: Yes (Hospitalization)
  Sender: FDA-Public Use
  Company Number: CN-GENENTECH-247165

PATIENT
  Age: 57 Year
  Sex: Male

DRUGS (3)
  1. BEVACIZUMAB [Suspect]
     Indication: COLON CANCER
     Dosage: 405 MG, Q3W
     Route: 042
     Dates: start: 20070117
  2. CAPECITABINE [Suspect]
     Indication: COLON CANCER
     Dosage: 3000 MG, D1-14/Q3W
     Route: 048
     Dates: start: 20070117
  3. OXALIPLATIN [Suspect]
     Indication: COLON CANCER
     Dosage: 200 MG, Q3W
     Route: 042
     Dates: start: 20070117

REACTIONS (1)
  - INCISIONAL HERNIA [None]
